FAERS Safety Report 7935418-3 (Version None)
Quarter: 2011Q4

REPORT INFORMATION
  Report Type: 
  Country: None (occurrence: None)
  Receive Date: 20111122
  Receipt Date: 20111116
  Transmission Date: 20120403
  Serious: Yes (Other)
  Sender: FDA-Public Use
  Company Number: DE-B.I. PHARMACEUTICALS,INC./RIDGEFIELD-2011-DE-06424DE

PATIENT
  Age: 83 Year
  Sex: Female

DRUGS (2)
  1. PRADAXA [Suspect]
     Indication: ATRIAL FIBRILLATION
     Dates: start: 20111005, end: 20111102
  2. PRADAXA [Suspect]
     Indication: TRANSIENT ISCHAEMIC ATTACK

REACTIONS (3)
  - HEMIPARESIS [None]
  - APHASIA [None]
  - CEREBROVASCULAR ACCIDENT [None]
